FAERS Safety Report 15993471 (Version 1)
Quarter: 2020Q3

REPORT INFORMATION
  Report Type: Spontaneous
  Country: US (occurrence: US)
  Receive Date: 20190222
  Receipt Date: 20190222
  Transmission Date: 20201105
  Serious: Yes (Hospitalization)
  Sender: FDA-Public Use
  Company Number: US-ROCHE-2265652

PATIENT
  Sex: Female

DRUGS (4)
  1. METHOTREXATE. [Concomitant]
     Active Substance: METHOTREXATE
  2. CERITINIB [Concomitant]
     Active Substance: CERITINIB
  3. ALECTINIB. [Suspect]
     Active Substance: ALECTINIB
     Indication: ADENOCARCINOMA
     Route: 065
     Dates: start: 20160908
  4. LORLATINIB [Concomitant]
     Active Substance: LORLATINIB

REACTIONS (4)
  - Seizure [Unknown]
  - Hyponatraemia [Unknown]
  - Lung adenocarcinoma [Unknown]
  - Metastases to meninges [Unknown]

NARRATIVE: CASE EVENT DATE: 201702
